FAERS Safety Report 11800806 (Version 6)
Quarter: 2017Q2

REPORT INFORMATION
  Report Type: Report from Study
  Country: TR (occurrence: TR)
  Receive Date: 20151204
  Receipt Date: 20170519
  Transmission Date: 20170829
  Serious: Yes (Death, Hospitalization)
  Sender: FDA-Public Use
  Company Number: TR-ROCHE-1667495

PATIENT
  Age: 60 Year
  Sex: Male
  Weight: 73 kg

DRUGS (5)
  1. CARDURA [Concomitant]
     Active Substance: DOXAZOSIN MESYLATE
     Indication: BENIGN PROSTATIC HYPERPLASIA
     Route: 048
     Dates: start: 2010
  2. MAXIPEN [Concomitant]
     Active Substance: PHENETHICILLIN POTASSIUM
     Indication: NEUTROPENIA
     Route: 042
     Dates: start: 20151012, end: 20151021
  3. OBINUTUZUMAB [Suspect]
     Active Substance: OBINUTUZUMAB
     Indication: CHRONIC LYMPHOCYTIC LEUKAEMIA
     Dosage: THE LAST DOSE PRIOR TO THE EVENT (WORSENING CLL) WAS ADMINISTERED ON 10/NOV/2015?THE LAST DOSE PRIOR
     Route: 042
     Dates: start: 20150915
  4. IBRUTINIB [Suspect]
     Active Substance: IBRUTINIB
     Indication: CHRONIC LYMPHOCYTIC LEUKAEMIA
     Dosage: THE LAST DOSE PRIOR TO THE EVENT (WORSENING CLL) WAS ADMINISTERED ON 12/NOV/2015?THE LAST DOSE PRIOR
     Route: 048
     Dates: start: 20150915, end: 20150920
  5. IBRUTINIB [Suspect]
     Active Substance: IBRUTINIB
     Dosage: THE LAST DOSE PRIOR TO THE EVENT (WORSENING CLL) WAS ADMINISTERED ON 12/NOV/2015
     Route: 048
     Dates: start: 20151005

REACTIONS (3)
  - Multi-organ disorder [Recovered/Resolved]
  - Febrile neutropenia [Recovered/Resolved]
  - Death [Fatal]

NARRATIVE: CASE EVENT DATE: 20150923
